FAERS Safety Report 23627825 (Version 1)
Quarter: 2024Q1

REPORT INFORMATION
  Report Type: Spontaneous
  Country: GB (occurrence: GB)
  Receive Date: 20240313
  Receipt Date: 20240313
  Transmission Date: 20240410
  Serious: Yes (Disabling)
  Sender: FDA-Public Use
  Company Number: None

PATIENT
  Age: 68 Year
  Sex: Male
  Weight: 89 kg

DRUGS (6)
  1. ATORVASTATIN [Suspect]
     Active Substance: ATORVASTATIN
     Indication: Blood cholesterol increased
     Dosage: 10 MILLIGRAM, QD
     Route: 065
     Dates: start: 20221102
  2. CODEINE PHOSPHATE [Concomitant]
     Active Substance: CODEINE PHOSPHATE
     Dosage: TAKE 1 TO 2 TABLETS 4-6 HOURLY WHEN REQUIRED FO...
     Route: 065
     Dates: start: 20240102, end: 20240106
  3. PEPPERMINT OIL [Concomitant]
     Active Substance: PEPPERMINT OIL
     Dosage: 1 DOSAGE FORM, TID. TO HELP BOWEL ...
     Route: 065
     Dates: start: 20180817
  4. POLYETHYLENE GLYCOLS [Concomitant]
     Active Substance: POLYETHYLENE GLYCOLS
     Dosage: UNK, PRN TAKE 2 SACHETS DAILY AS REQUIRED
     Route: 065
     Dates: start: 20210729
  5. ACETAMINOPHEN [Concomitant]
     Active Substance: ACETAMINOPHEN
     Dosage: UNK, PRN (TAKE 1 TO 2 TABLETS UP TO FOUR TIMES A DAY WHEN)
     Route: 065
     Dates: start: 20180817
  6. ALBUTEROL [Concomitant]
     Active Substance: ALBUTEROL
     Dosage: UNK, PRN (INHALE ONE OR TWO PUFFS AS NEEDED TO RELIEVE BR)
     Route: 055
     Dates: start: 20230208

REACTIONS (2)
  - Myalgia [Recovered/Resolved]
  - Pain [Unknown]
